FAERS Safety Report 23629785 (Version 1)
Quarter: 2024Q1

REPORT INFORMATION
  Report Type: Spontaneous
  Country: US (occurrence: US)
  Receive Date: 20240314
  Receipt Date: 20240314
  Transmission Date: 20240410
  Serious: Yes (Other)
  Sender: FDA-Public Use
  Company Number: US-JNJFOC-20240312902

PATIENT

DRUGS (1)
  1. DARZALEX [Interacting]
     Active Substance: DARATUMUMAB
     Indication: Product used for unknown indication
     Route: 065

REACTIONS (7)
  - Drug ineffective [Unknown]
  - Wrong technique in product usage process [Unknown]
  - Pharyngeal swelling [Unknown]
  - Drug interaction [Unknown]
  - Dyspnoea [Unknown]
  - Condition aggravated [Unknown]
  - Infusion related reaction [Unknown]
